FAERS Safety Report 4647172-1 (Version None)
Quarter: 2005Q2

REPORT INFORMATION
  Report Type: 
  Country: None (occurrence: None)
  Receive Date: 20050428
  Receipt Date: 20050310
  Transmission Date: 20051028
  Serious: Yes (Other)
  Sender: FDA-Public Use
  Company Number: US-ABBOTT-05P-163-0294065-00

PATIENT
  Sex: Female
  Weight: 95 kg

DRUGS (2)
  1. BIAXIN XL [Suspect]
     Indication: LYMPHADENOPATHY
     Route: 048
     Dates: start: 20041207, end: 20041221
  2. BIAXIN XL [Suspect]
     Indication: SINUSITIS

REACTIONS (1)
  - ABORTION SPONTANEOUS [None]
